FAERS Safety Report 4773708-6 (Version None)
Quarter: 2005Q3

REPORT INFORMATION
  Report Type: 
  Country: None (occurrence: None)
  Receive Date: 20050919
  Receipt Date: 20050908
  Transmission Date: 20060218
  Serious: Yes (Hospitalization)
  Sender: FDA-Public Use
  Company Number: BEWYE961608SEP05

PATIENT
  Age: 62 Year
  Sex: Male

DRUGS (4)
  1. RAPAMUNE [Suspect]
     Indication: PROPHYLAXIS AGAINST TRANSPLANT REJECTION
     Dosage: 4 MG/DAY, ORAL
     Route: 048
     Dates: start: 20050214
  2. PROGRAF [Concomitant]
  3. MEDROL [Concomitant]
  4. ZENAPAX [Concomitant]

REACTIONS (2)
  - ATRIAL FIBRILLATION [None]
  - HYPOKALAEMIA [None]
